FAERS Safety Report 10606707 (Version 1)
Quarter: 2014Q4

REPORT INFORMATION
  Report Type: Spontaneous
  Country: US (occurrence: None)
  Receive Date: 20141124
  Receipt Date: 20141124
  Transmission Date: 20150529
  Serious: No
  Sender: FDA-Public Use
  Company Number: None

PATIENT
  Age: 55 Year
  Sex: Female
  Weight: 67.13 kg

DRUGS (1)
  1. TRAZODONE [Suspect]
     Active Substance: TRAZODONE HYDROCHLORIDE
     Indication: INSOMNIA
     Dosage: 100?AT BEDTIME?TAKEN BY MOUTH
     Route: 048
     Dates: start: 20141117, end: 20141121

REACTIONS (7)
  - Fatigue [None]
  - Product quality issue [None]
  - Middle insomnia [None]
  - Product substitution issue [None]
  - Disturbance in attention [None]
  - Drug ineffective [None]
  - Quality of life decreased [None]

NARRATIVE: CASE EVENT DATE: 20141117
